FAERS Safety Report 25178580 (Version 1)
Quarter: 2025Q2

REPORT INFORMATION
  Report Type: Spontaneous
  Country: US (occurrence: US)
  Receive Date: 20250409
  Receipt Date: 20250409
  Transmission Date: 20250717
  Serious: Yes (Hospitalization, Other)
  Sender: AMNEAL
  Company Number: US-AMNEAL PHARMACEUTICALS-2025-AMRX-01307

PATIENT
  Age: 74 Year
  Sex: Female

DRUGS (1)
  1. ALYMSYS [Suspect]
     Active Substance: BEVACIZUMAB-MALY
     Indication: Rectal adenocarcinoma
     Route: 065

REACTIONS (4)
  - Cardiomyopathy [Recovered/Resolved]
  - Encephalopathy [Recovered/Resolved]
  - Oliguria [Recovered/Resolved]
  - Hypoxia [Recovered/Resolved]
